FAERS Safety Report 5848247-1 (Version None)
Quarter: 2008Q3

REPORT INFORMATION
  Report Type: 
  Country: None (occurrence: None)
  Receive Date: 20080818
  Receipt Date: 20080812
  Transmission Date: 20090109
  Serious: Yes (Death)
  Sender: FDA-Public Use
  Company Number: JP-BRISTOL-MYERS SQUIBB COMPANY-14285878

PATIENT
  Age: 56 Year
  Sex: Male

DRUGS (3)
  1. TAXOL [Suspect]
     Indication: SMALL CELL LUNG CANCER STAGE UNSPECIFIED
     Route: 041
     Dates: start: 20060815, end: 20060825
  2. PARAPLATIN [Suspect]
     Indication: SMALL CELL LUNG CANCER STAGE UNSPECIFIED
     Route: 041
     Dates: start: 20060815, end: 20060825
  3. AMRUBICIN HCL [Concomitant]
     Route: 042
     Dates: start: 20060517

REACTIONS (2)
  - DISSEMINATED INTRAVASCULAR COAGULATION [None]
  - FEBRILE NEUTROPENIA [None]
